FAERS Safety Report 9515018 (Version 1)
Quarter: 2013Q3

REPORT INFORMATION
  Report Type: Spontaneous
  Country: US (occurrence: None)
  Receive Date: 20130909
  Receipt Date: 20130909
  Transmission Date: 20140515
  Serious: Yes (Other)
  Sender: FDA-Public Use
  Company Number: SYM-2013-10385

PATIENT
  Age: 61 Year
  Sex: Male

DRUGS (1)
  1. XENAZINE [Suspect]
     Indication: HUNTINGTON^S DISEASE
     Dosage: 25 MG, 1 IN 1 D, ORAL
     Route: 048
     Dates: start: 201301

REACTIONS (2)
  - Psychotic disorder [None]
  - Depression [None]
